FAERS Safety Report 9908743 (Version 1)
Quarter: 2014Q1

REPORT INFORMATION
  Report Type: Spontaneous
  Country: US (occurrence: US)
  Receive Date: 20140219
  Receipt Date: 20140219
  Transmission Date: 20141002
  Serious: No
  Sender: FDA-Public Use
  Company Number: US-PFIZER INC-2014043409

PATIENT
  Age: 25 Year
  Sex: Female
  Weight: 59 kg

DRUGS (5)
  1. DEPO-PROVERA [Suspect]
     Indication: CONTRACEPTION
     Dosage: UNK, EVERY 3 MONTHS
     Dates: start: 2012
  2. DEPO-PROVERA [Suspect]
     Indication: HORMONE SUPPRESSION THERAPY
  3. DEPO-PROVERA [Suspect]
     Indication: ENDOMETRIOSIS
  4. DEPO-PROVERA [Suspect]
     Indication: DYSMENORRHOEA
  5. IMITREX [Concomitant]
     Indication: MIGRAINE
     Dosage: 50 MG, AS NEEDED

REACTIONS (4)
  - Metrorrhagia [Unknown]
  - Abdominal pain [Unknown]
  - Drug administered at inappropriate site [Unknown]
  - Product quality issue [Unknown]
